FAERS Safety Report 8000325-7 (Version None)
Quarter: 2011Q4

REPORT INFORMATION
  Report Type: 
  Country: None (occurrence: None)
  Receive Date: 20111222
  Receipt Date: 20111214
  Transmission Date: 20120403
  Serious: Yes (Other)
  Sender: FDA-Public Use
  Company Number: BR-ASTELLAS-2011US000067

PATIENT

DRUGS (5)
  1. MYCOPHENOLATE SODIUM [Concomitant]
     Dosage: 1440 MG, UID/QD
     Route: 048
     Dates: start: 20100722
  2. TACROLIMUS [Suspect]
     Indication: RENAL TRANSPLANT
     Dosage: 4 MG, BID
     Route: 048
     Dates: start: 20091225
  3. MYCOPHENOLATE SODIUM [Concomitant]
     Indication: RENAL TRANSPLANT
     Dosage: 1080 MG, UID/QD
     Route: 048
     Dates: start: 20100311, end: 20100721
  4. PREDNISONE [Concomitant]
     Indication: RENAL TRANSPLANT
     Dosage: 10 MG, UID/QD
     Route: 048
     Dates: start: 20100525, end: 20100806
  5. PREDNISONE [Concomitant]
     Dosage: 7.5 MG, UID/QD
     Route: 048
     Dates: start: 20100806

REACTIONS (3)
  - RENAL TUBULAR ATROPHY [None]
  - URINARY TRACT INFLAMMATION [None]
  - KIDNEY FIBROSIS [None]
